FAERS Safety Report 8341744-9 (Version None)
Quarter: 2012Q2

REPORT INFORMATION
  Report Type: 
  Country: None (occurrence: None)
  Receive Date: 20120503
  Receipt Date: 20120501
  Transmission Date: 20120825
  Serious: Yes (Hospitalization, Other)
  Sender: FDA-Public Use
  Company Number: ADR-2012-00273

PATIENT
  Age: 46 Year
  Sex: Male

DRUGS (3)
  1. LIORESAL [Suspect]
     Indication: SPINAL CORD INJURY
  2. LIORESAL [Suspect]
     Indication: SPINAL CORD DISORDER
  3. LIORESAL [Suspect]
     Indication: MUSCLE SPASTICITY

REACTIONS (13)
  - BODY TEMPERATURE INCREASED [None]
  - INTRACRANIAL HYPOTENSION [None]
  - ACUTE SINUSITIS [None]
  - POST LUMBAR PUNCTURE SYNDROME [None]
  - MUSCULOSKELETAL STIFFNESS [None]
  - HEADACHE [None]
  - SOFT TISSUE INFECTION [None]
  - DEVICE RELATED INFECTION [None]
  - MENINGITIS [None]
  - RENAL FAILURE [None]
  - CELLULITIS [None]
  - NAUSEA [None]
  - CHRONIC SINUSITIS [None]
